FAERS Safety Report 10813650 (Version 3)
Quarter: 2015Q2

REPORT INFORMATION
  Report Type: Spontaneous
  Country: BR (occurrence: BR)
  Receive Date: 20150218
  Receipt Date: 20150423
  Transmission Date: 20150821
  Serious: No
  Sender: FDA-Public Use
  Company Number: BR-AMGEN-BRASP2015007584

PATIENT
  Age: 52 Year
  Sex: Female
  Weight: 79 kg

DRUGS (6)
  1. NIMESULIDE [Suspect]
     Active Substance: NIMESULIDE
     Dosage: UNSPECIFIED DOSE, 1X/DAY
     Route: 065
     Dates: end: 201503
  2. NIMESULIDE [Suspect]
     Active Substance: NIMESULIDE
     Indication: PAIN
     Dosage: 1 TABLET (UNSPECIFIED DOSE), WEEKLY
     Route: 065
     Dates: start: 201501
  3. PREDNISONE. [Suspect]
     Active Substance: PREDNISONE
     Indication: PAIN
     Dosage: 5 MG, 1X/DAY
     Route: 065
     Dates: start: 201501
  4. OMEGA 3                            /01334101/ [Concomitant]
     Active Substance: OMEGA-3 FATTY ACIDS
     Dosage: UNK
  5. ENBREL [Suspect]
     Active Substance: ETANERCEPT
     Indication: RHEUMATOID ARTHRITIS
     Dosage: 50 MG, QWK
     Route: 065
     Dates: start: 201501
  6. CORTISONE [Concomitant]
     Active Substance: CORTISONE\HYDROCORTISONE
     Dosage: UNK
     Dates: start: 201501

REACTIONS (7)
  - Erythema [Not Recovered/Not Resolved]
  - Skin discolouration [Not Recovered/Not Resolved]
  - Drug ineffective [Unknown]
  - Gait disturbance [Unknown]
  - Peripheral swelling [Unknown]
  - Drug effect incomplete [Not Recovered/Not Resolved]
  - Injection site pruritus [Recovered/Resolved]

NARRATIVE: CASE EVENT DATE: 201501
